FAERS Safety Report 8406635-3 (Version None)
Quarter: 2012Q2

REPORT INFORMATION
  Report Type: 
  Country: None (occurrence: None)
  Receive Date: 20120604
  Receipt Date: 20120522
  Transmission Date: 20120825
  Serious: Yes (Other)
  Sender: FDA-Public Use
  Company Number: US-PFIZER INC-2012127018

PATIENT
  Age: 60 Year
  Sex: Male

DRUGS (5)
  1. PEGFILGRASTIM [Suspect]
     Indication: ACUTE MYELOID LEUKAEMIA
     Dosage: 6 MG, UNK ON DAY 6
     Route: 058
  2. GEMTUZUMAB OZOGAMICIN [Suspect]
     Indication: ACUTE MYELOID LEUKAEMIA
     Dosage: 3 MG/M2 ON DAY 1
     Route: 042
  3. FILGRASTIM [Suspect]
     Indication: ACUTE MYELOID LEUKAEMIA
     Dosage: 5 A?G/KG/DAY ON DAY 1-5
     Route: 058
  4. FLUDARABINE PHOSPHATE [Suspect]
     Indication: ACUTE MYELOID LEUKAEMIA
     Dosage: 30 MG/M2/DAY OVER 30 MINUTES ON DAYS 1-5
     Route: 042
  5. CYTARABINE [Suspect]
     Indication: ACUTE MYELOID LEUKAEMIA
     Dosage: 2G/M2/DAY OVER 4 HOURS ON DAYS 1-5
     Route: 042

REACTIONS (3)
  - NAUSEA [None]
  - PANCYTOPENIA [None]
  - TOXICITY TO VARIOUS AGENTS [None]
